FAERS Safety Report 7205834-6 (Version None)
Quarter: 2010Q4

REPORT INFORMATION
  Report Type: 
  Country: None (occurrence: None)
  Receive Date: 20101231
  Receipt Date: 20101223
  Transmission Date: 20110411
  Serious: Yes (Other)
  Sender: FDA-Public Use
  Company Number: US-AMGEN-USASP2010010585

PATIENT

DRUGS (2)
  1. ENBREL [Suspect]
     Indication: PRODUCT USED FOR UNKNOWN INDICATION
     Dosage: 50 MG, QWK
  2. ENBREL [Suspect]

REACTIONS (4)
  - LIP SWELLING [None]
  - PARAESTHESIA ORAL [None]
  - RASH PAPULAR [None]
  - URTICARIA [None]
